FAERS Safety Report 4842680-2 (Version None)
Quarter: 2005Q4

REPORT INFORMATION
  Report Type: 
  Country: None (occurrence: None)
  Receive Date: 20051129
  Receipt Date: 20051116
  Transmission Date: 20060501
  Serious: Yes (Death)
  Sender: FDA-Public Use
  Company Number: US200511000048

PATIENT
  Age: 88 Year
  Sex: Female

DRUGS (2)
  1. FORTEO [Suspect]
     Dosage: UNK
  2. FORTEO PEN (250MCG/ML) (FORTEO PEN 250MCG/ML (3ML)) [Concomitant]

REACTIONS (1)
  - NO ADVERSE DRUG EFFECT [None]
